FAERS Safety Report 6455258-4 (Version None)
Quarter: 2009Q4

REPORT INFORMATION
  Report Type: 
  Country: None (occurrence: None)
  Receive Date: 20091119
  Receipt Date: 20091104
  Transmission Date: 20100525
  Serious: Yes (Other)
  Sender: FDA-Public Use
  Company Number: 8053446

PATIENT
  Age: 60 Year
  Sex: Female
  Weight: 75 kg

DRUGS (15)
  1. KEPPRA [Suspect]
     Indication: EPILEPSY
     Dosage: 2000 MG /D PO
     Route: 048
  2. KEPPRA [Suspect]
     Indication: GLIOBLASTOMA
     Dosage: 2000 MG /D PO
     Route: 048
  3. VIMPAT [Suspect]
     Indication: EPILEPSY
     Dosage: 250 MG /D PO
     Route: 048
  4. VIMPAT [Suspect]
     Indication: GLIOBLASTOMA
     Dosage: 250 MG /D PO
     Route: 048
  5. VIMPAT [Suspect]
     Indication: EPILEPSY
     Dosage: 250 MG /D IV
     Route: 042
  6. VIMPAT [Suspect]
     Indication: GLIOBLASTOMA
     Dosage: 250 MG /D IV
     Route: 042
  7. VIMPAT [Suspect]
     Indication: EPILEPSY
     Dosage: 250 MG /D PO
     Route: 048
  8. VIMPAT [Suspect]
     Indication: GLIOBLASTOMA
     Dosage: 250 MG /D PO
     Route: 048
  9. VIMPAT [Suspect]
     Indication: EPILEPSY
     Dosage: 200 MG 2/D PO
     Route: 048
     Dates: start: 20090501
  10. VIMPAT [Suspect]
     Indication: GLIOBLASTOMA
     Dosage: 200 MG 2/D PO
     Route: 048
     Dates: start: 20090501
  11. TORASEMIDE [Concomitant]
  12. MAGNESIUM [Concomitant]
  13. ASPIRIN [Concomitant]
  14. BISOPROLOL [Concomitant]
  15. L-THYROXIN [Concomitant]

REACTIONS (3)
  - DYSPHAGIA [None]
  - PYREXIA [None]
  - STATUS EPILEPTICUS [None]
